FAERS Safety Report 15122852 (Version 2)
Quarter: 2018Q4

REPORT INFORMATION
  Report Type: Report from Study
  Country: FR (occurrence: FR)
  Receive Date: 20180709
  Receipt Date: 20181107
  Transmission Date: 20190204
  Serious: Yes (Death, Hospitalization, Other)
  Sender: FDA-Public Use
  Company Number: FR-MYLANLABS-2018M1047855

PATIENT
  Age: 86 Year
  Sex: Male
  Weight: 73 kg

DRUGS (11)
  1. KARDEGIC [Suspect]
     Active Substance: ASPIRIN DL-LYSINE
     Indication: PRODUCT USED FOR UNKNOWN INDICATION
     Dosage: 75 MG, DAILY
     Route: 048
     Dates: start: 20170606, end: 20180207
  2. CORDARONE [Concomitant]
     Active Substance: AMIODARONE HYDROCHLORIDE
     Indication: ARRHYTHMIA
     Dosage: 200 MG, UNK
     Route: 048
  3. LIPITOR [Concomitant]
     Active Substance: ATORVASTATIN CALCIUM
     Indication: DYSLIPIDAEMIA
     Dosage: 5 MG, UNK
     Route: 048
  4. FELODIPINE. [Concomitant]
     Active Substance: FELODIPINE
     Indication: HYPERTENSION
     Dosage: 5 MG, UNK
     Route: 048
  5. ESOMEPRAZOLE. [Concomitant]
     Active Substance: ESOMEPRAZOLE MAGNESIUM
     Indication: PRODUCT USED FOR UNKNOWN INDICATION
     Dosage: 20 MG, UNK
     Route: 048
  6. DIFFU K [Concomitant]
     Active Substance: POTASSIUM CHLORIDE
     Indication: PRODUCT USED FOR UNKNOWN INDICATION
     Dosage: 1200 MG, UNK
     Route: 048
  7. CLOPIDOGREL [Suspect]
     Active Substance: CLOPIDOGREL BISULFATE
     Indication: PRODUCT USED FOR UNKNOWN INDICATION
     Dosage: 75 MG, DAILY
     Route: 048
     Dates: start: 20170616, end: 20180104
  8. APIXABAN [Suspect]
     Active Substance: APIXABAN
     Indication: PRODUCT USED FOR UNKNOWN INDICATION
     Dosage: UNK
     Route: 048
  9. AMOXICILLINE                       /00249601/ [Concomitant]
     Active Substance: AMOXICILLIN
     Indication: ENDOCARDITIS
     Dosage: UNK
     Route: 042
  10. COAPROVEL [Concomitant]
     Active Substance: HYDROCHLOROTHIAZIDE\IRBESARTAN
     Indication: HYPERTENSION
     Dosage: UNK MG, UNK
     Route: 048
  11. LEVOTHYROX [Concomitant]
     Active Substance: LEVOTHYROXINE
     Indication: THYROID DISORDER
     Dosage: 25 G, UNK
     Route: 048

REACTIONS (4)
  - Pneumonia bacterial [Fatal]
  - Pneumonia [Fatal]
  - Rectal haemorrhage [Not Recovered/Not Resolved]
  - Death [Fatal]

NARRATIVE: CASE EVENT DATE: 20180118
